FAERS Safety Report 5509214-0 (Version None)
Quarter: 2007Q4

REPORT INFORMATION
  Report Type: 
  Country: None (occurrence: None)
  Receive Date: 20071107
  Receipt Date: 20071026
  Transmission Date: 20080405
  Serious: Yes (Hospitalization)
  Sender: FDA-Public Use
  Company Number: US-ELI_LILLY_AND_COMPANY-US200710006759

PATIENT
  Sex: Male

DRUGS (10)
  1. BYETTA [Suspect]
     Dosage: 5 UG, 2/D
     Route: 058
     Dates: start: 20050101, end: 20050101
  2. BYETTA [Suspect]
     Dosage: 10 UG, 2/D
     Route: 058
     Dates: start: 20050101, end: 20070202
  3. BYETTA [Suspect]
     Dosage: 10 UG, 2/D
     Route: 058
     Dates: start: 20071016
  4. BYETTA [Suspect]
     Dosage: 10 UG, 2/D
     Route: 058
     Dates: start: 20071016
  5. GLUCOTROL [Concomitant]
     Dosage: UNK, UNKNOWN
     Dates: end: 20070202
  6. GLUCOTROL [Concomitant]
     Dosage: UNK, UNKNOWN
     Dates: start: 20071016
  7. GLUCOPHAGE [Concomitant]
     Dosage: UNK, UNKNOWN
     Dates: end: 20070202
  8. GLUCOPHAGE [Concomitant]
     Dosage: UNK, UNKNOWN
     Dates: start: 20071016
  9. LEVEMIR [Concomitant]
     Dosage: UNK, UNKNOWN
     Dates: start: 20070201, end: 20071016
  10. NOVOLOG [Concomitant]
     Dosage: UNK, UNKNOWN
     Dates: start: 20070201, end: 20071016

REACTIONS (1)
  - MYOCARDIAL INFARCTION [None]
